FAERS Safety Report 7865857-0 (Version None)
Quarter: 2011Q4

REPORT INFORMATION
  Report Type: 
  Country: None (occurrence: None)
  Receive Date: 20111028
  Receipt Date: 20110310
  Transmission Date: 20120403
  Serious: No
  Sender: FDA-Public Use
  Company Number: US-GLAXOSMITHKLINE-A0917556A

PATIENT
  Age: 62 Year
  Sex: Female

DRUGS (3)
  1. ADVAIR DISKUS 100/50 [Suspect]
     Indication: DYSPNOEA
     Dosage: 1PUFF PER DAY
     Route: 055
     Dates: start: 20091101
  2. VITAMIN D [Concomitant]
  3. FISH OIL [Concomitant]
     Route: 048

REACTIONS (4)
  - SWELLING FACE [None]
  - ABDOMINAL DISTENSION [None]
  - WEIGHT INCREASED [None]
  - MUSCLE TIGHTNESS [None]
